FAERS Safety Report 22313268 (Version 1)
Quarter: 2023Q2

REPORT INFORMATION
  Report Type: Spontaneous
  Country: FR (occurrence: FR)
  Receive Date: 20230512
  Receipt Date: 20230512
  Transmission Date: 20230722
  Serious: Yes (Other)
  Sender: FDA-Public Use
  Company Number: FR-AFSSAPS-MA2023001520

PATIENT
  Age: 42 Year
  Sex: Female

DRUGS (3)
  1. SILDENAFIL [Suspect]
     Active Substance: SILDENAFIL
     Indication: Weight decreased
     Dosage: UNK(2 SACHETS DE TREX TEA PAR JOUR)
     Route: 048
     Dates: start: 2022
  2. PSYLLIUM HUSK [Suspect]
     Active Substance: PSYLLIUM HUSK
     Indication: Weight decreased
     Dosage: UNK(2 SACHETS DE TREX TEA PAR JOUR)
     Route: 048
     Dates: start: 2022
  3. SIBUTRAMINE [Suspect]
     Active Substance: SIBUTRAMINE
     Indication: Weight decreased
     Dosage: UNK(2 SACHETS DE TREX TEA PAR JOUR)
     Route: 048
     Dates: start: 2022

REACTIONS (5)
  - Decreased appetite [Unknown]
  - Initial insomnia [Unknown]
  - Suspected counterfeit product [Unknown]
  - Tachycardia [Unknown]
  - Weight decreased [Unknown]

NARRATIVE: CASE EVENT DATE: 20220101
